FAERS Safety Report 23347758 (Version 2)
Quarter: 2024Q1

REPORT INFORMATION
  Report Type: Spontaneous
  Country: US (occurrence: US)
  Receive Date: 20231228
  Receipt Date: 20240226
  Transmission Date: 20240409
  Serious: No
  Sender: FDA-Public Use
  Company Number: US-SA-SAC20231220000479

PATIENT
  Age: 49 Year
  Sex: Male

DRUGS (3)
  1. DUPIXENT [Suspect]
     Active Substance: DUPILUMAB
     Indication: Nasal polyps
     Dosage: 300 MG, QOW
     Route: 058
     Dates: start: 20231101
  2. WARFARIN [Concomitant]
     Active Substance: WARFARIN
     Dosage: 10 MG
  3. WARFARIN [Concomitant]
     Active Substance: WARFARIN
     Dosage: 8 MG

REACTIONS (2)
  - Anosmia [Recovered/Resolved]
  - Drug ineffective [Unknown]

NARRATIVE: CASE EVENT DATE: 20231111
